FAERS Safety Report 14080806 (Version 1)
Quarter: 2017Q4

REPORT INFORMATION
  Report Type: Report from Study
  Country: ES (occurrence: ES)
  Receive Date: 20171012
  Receipt Date: 20171012
  Transmission Date: 20180321
  Serious: Yes (Hospitalization)
  Sender: FDA-Public Use
  Company Number: ES-CELGENEUS-ESP-2015025159

PATIENT
  Age: 69 Year
  Sex: Male
  Weight: 91.4 kg

DRUGS (2)
  1. AZACITIDINE INJECTABLE [Suspect]
     Active Substance: AZACITIDINE
     Dosage: 135 MILLIGRAM
     Route: 058
     Dates: start: 20150317, end: 20150323
  2. AZACITIDINE INJECTABLE [Suspect]
     Active Substance: AZACITIDINE
     Indication: ACUTE MYELOID LEUKAEMIA
     Dosage: 37.5 MILLIGRAM/SQ. METER
     Route: 058
     Dates: start: 20150213, end: 20150219

REACTIONS (4)
  - Renal failure [Unknown]
  - Febrile neutropenia [Recovered/Resolved]
  - Renal failure [Recovered/Resolved with Sequelae]
  - Colitis [Recovered/Resolved]

NARRATIVE: CASE EVENT DATE: 20150218
